FAERS Safety Report 6437896-8 (Version None)
Quarter: 2009Q4

REPORT INFORMATION
  Report Type: 
  Country: None (occurrence: None)
  Receive Date: 20091109
  Receipt Date: 20091026
  Transmission Date: 20100525
  Serious: Yes (Other)
  Sender: FDA-Public Use
  Company Number: 2009AP004311

PATIENT
  Sex: Female

DRUGS (3)
  1. LAMOTRIGINE [Suspect]
  2. AMISULPRIDE (AMISULPRIDE) [Suspect]
  3. CLOZARIL [Suspect]
     Indication: SCHIZOPHRENIA
     Dates: start: 20050727

REACTIONS (2)
  - BLOOD PROLACTIN INCREASED [None]
  - WHITE BLOOD CELL COUNT DECREASED [None]
